FAERS Safety Report 14764570 (Version 1)
Quarter: 2018Q2

REPORT INFORMATION
  Report Type: Spontaneous
  Country: DE (occurrence: DE)
  Receive Date: 20180416
  Receipt Date: 20180416
  Transmission Date: 20180711
  Serious: Yes (Disabling, Other)
  Sender: FDA-Public Use
  Company Number: PHHY2018DE064772

PATIENT
  Sex: Male

DRUGS (3)
  1. PREDNI [Suspect]
     Active Substance: PREDNISONE ACETATE
     Indication: HERPES OPHTHALMIC
     Dosage: UNK
     Route: 065
  2. ACICLOVIR [Suspect]
     Active Substance: ACYCLOVIR
     Indication: HERPES OPHTHALMIC
     Dosage: UNK
     Route: 065
  3. CELESTAMINE [Suspect]
     Active Substance: BETAMETHASONE\DEXCHLORPHENIRAMINE MALEATE
     Indication: HERPES OPHTHALMIC
     Dosage: DEPOT
     Route: 065

REACTIONS (2)
  - Corneal opacity [Not Recovered/Not Resolved]
  - Visual acuity reduced [Not Recovered/Not Resolved]
